FAERS Safety Report 13071859 (Version 1)
Quarter: 2016Q4

REPORT INFORMATION
  Report Type: Spontaneous
  Country: GB (occurrence: GB)
  Receive Date: 20161229
  Receipt Date: 20161229
  Transmission Date: 20170207
  Serious: Yes (Other)
  Sender: FDA-Public Use
  Company Number: GB-TEVA-724510ACC

PATIENT
  Age: 66 Year
  Sex: Female
  Weight: 81 kg

DRUGS (30)
  1. BETNOVATE [Concomitant]
     Active Substance: BETAMETHASONE
     Dosage: 2 DOSAGE FORMS DAILY; FOR A WEEK
     Dates: start: 20160509
  2. CHLORPHENAMINE [Concomitant]
     Active Substance: CHLORPHENIRAMINE MALEATE
     Dosage: EVERY 4-6 HOURS
     Dates: start: 20160509
  3. DICLOFENACDIETHYLAMMONIUM [Concomitant]
     Dosage: 3 TIMES PER DAY
     Route: 061
     Dates: start: 20161018, end: 20161115
  4. HYOSCINE BUTYLBROMIDE [Concomitant]
     Active Substance: BUTYLSCOPOLAMINE
     Dates: start: 20160822
  5. LACRI-LUBE [Concomitant]
     Route: 061
     Dates: start: 20160509
  6. LOPERAMIDE [Concomitant]
     Active Substance: LOPERAMIDE
     Dosage: FOUR TIMES A DAY
     Dates: start: 20160706
  7. OMEPRAZOLE. [Concomitant]
     Active Substance: OMEPRAZOLE
     Dosage: 2 DOSAGE FORMS DAILY;
     Dates: start: 20160822
  8. PARACETAMOL [Concomitant]
     Active Substance: ACETAMINOPHEN
     Dosage: 6 DOSAGE FORMS DAILY; AT 8AM, 2PM AND 6PM
     Dates: start: 20160509
  9. QVAR [Concomitant]
     Active Substance: BECLOMETHASONE DIPROPIONATE
     Dosage: 1 OR 2 DOSE
     Route: 055
     Dates: start: 20160509
  10. RAMIPRIL. [Concomitant]
     Active Substance: RAMIPRIL
     Dosage: 2 DOSAGE FORMS DAILY;
     Dates: start: 20160509
  11. SALBUTAMOL [Concomitant]
     Active Substance: ALBUTEROL
     Route: 055
     Dates: start: 20160509
  12. DOXYCYCLINE. [Suspect]
     Active Substance: DOXYCYCLINE
     Dates: start: 20161213
  13. CETIRIZINE [Concomitant]
     Active Substance: CETIRIZINE HYDROCHLORIDE
     Dosage: 1 DOSAGE FORMS DAILY;
     Dates: start: 20160509
  14. COLPERMIN [Concomitant]
     Dosage: 3 DOSAGE FORMS DAILY;
     Dates: start: 20160509
  15. FULTIUM-D3 [Concomitant]
     Dosage: 1 DOSAGE FORMS DAILY;
     Dates: start: 20160509
  16. MOMETASONE [Concomitant]
     Active Substance: MOMETASONE
     Dosage: 2 DOSAGE FORMS DAILY;
     Dates: start: 20160509
  17. MOVELAT [Concomitant]
     Dosage: 3 DOSAGE FORMS DAILY;
     Route: 061
     Dates: start: 20161122, end: 20161127
  18. NIZORAL [Concomitant]
     Active Substance: KETOCONAZOLE
     Dates: start: 20161111, end: 20161112
  19. E45 [Concomitant]
     Active Substance: LANOLIN\LIGHT MINERAL OIL\PARAFFIN
     Route: 061
     Dates: start: 20160509
  20. XARELTO [Concomitant]
     Active Substance: RIVAROXABAN
     Dosage: 1 DOSAGE FORMS DAILY;
     Dates: start: 20160509
  21. DILTIAZEM HYDROCHLORIDE. [Concomitant]
     Active Substance: DILTIAZEM HYDROCHLORIDE
     Dosage: 1 DOSAGE FORMS DAILY;
     Dates: start: 20160509
  22. CLOTRIMAZOLE. [Concomitant]
     Active Substance: CLOTRIMAZOLE
     Dosage: 2-3 TIMES/DAY
     Route: 061
     Dates: start: 20161018, end: 20161115
  23. NAPROXEN. [Concomitant]
     Active Substance: NAPROXEN
     Dosage: 2 DOSAGE FORMS DAILY;
     Dates: start: 20160902
  24. BENDROFLUMETHIAZIDE [Concomitant]
     Active Substance: BENDROFLUMETHIAZIDE
     Dosage: 1 DOSAGE FORMS DAILY; EACH MORNING
     Dates: start: 20160509
  25. NITROLINGUAL [Concomitant]
     Active Substance: NITROGLYCERIN
     Dates: start: 20160509
  26. OPTIVE [Concomitant]
     Active Substance: CARBOXYMETHYLCELLULOSE SODIUM\GLYCERIN
     Dosage: 4 DOSAGE FORMS DAILY;
     Dates: start: 20160509
  27. ROSUVASTATIN. [Concomitant]
     Active Substance: ROSUVASTATIN
     Dosage: .5 DOSAGE FORMS DAILY;
     Dates: start: 20160509
  28. OTOMIZE [Concomitant]
     Active Substance: DEXAMETHASONE\NEOMYCIN SULFATE
     Dosage: 3 DOSAGE FORMS DAILY;
     Dates: start: 20161101, end: 20161102
  29. CHEMYDUR XL [Concomitant]
     Dosage: 1 DOSAGE FORMS DAILY; EACH MORNING
     Dates: start: 20160509
  30. FORCEVAL [Concomitant]
     Active Substance: FOLIC ACID\IRON\MINERALS\VITAMINS
     Dosage: 1 DOSAGE FORMS DAILY;
     Dates: start: 20160509

REACTIONS (2)
  - Ecchymosis [Unknown]
  - Contusion [Recovering/Resolving]

NARRATIVE: CASE EVENT DATE: 20161213
